FAERS Safety Report 10209893 (Version 2)
Quarter: 2014Q2

REPORT INFORMATION
  Report Type: Other
  Country: CA (occurrence: CA)
  Receive Date: 20140602
  Receipt Date: 20140605
  Transmission Date: 20141212
  Serious: Yes (Hospitalization)
  Sender: FDA-Public Use
  Company Number: CA-SHIRE-CA201402526

PATIENT
  Age: 15 Year
  Sex: Male
  Weight: 39.2 kg

DRUGS (1)
  1. ELAPRASE [Suspect]
     Indication: MUCOPOLYSACCHARIDOSIS II
     Dosage: 18 MG, 1X/WEEK
     Route: 041
     Dates: start: 200804

REACTIONS (3)
  - Tremor [Unknown]
  - Pyrexia [Recovered/Resolved]
  - Infusion related reaction [Unknown]
